FAERS Safety Report 6977026-7 (Version None)
Quarter: 2010Q3

REPORT INFORMATION
  Report Type: 
  Country: None (occurrence: None)
  Receive Date: 20100910
  Receipt Date: 20100901
  Transmission Date: 20110219
  Serious: Yes (Hospitalization, Other)
  Sender: FDA-Public Use
  Company Number: BR-ABBOTT-09P-020-0601687-00

PATIENT
  Sex: Female
  Weight: 65 kg

DRUGS (19)
  1. HUMIRA [Suspect]
     Indication: RHEUMATOID ARTHRITIS
     Route: 058
     Dates: end: 20090801
  2. HUMIRA [Suspect]
     Route: 058
     Dates: start: 20090901
  3. METHOTREXATE [Concomitant]
     Indication: RHEUMATOID ARTHRITIS
     Route: 048
  4. ARAVA [Concomitant]
     Indication: RHEUMATOID ARTHRITIS
     Route: 048
  5. ARAVA [Concomitant]
     Route: 048
  6. LOSARTAN/HYDROCHLOORTHIAZIDE [Concomitant]
     Indication: HYPERTENSION
     Dosage: 50MG/12.5MG
     Route: 048
  7. OMEPRAZOLE [Concomitant]
     Indication: GASTRIC DISORDER
     Route: 048
  8. METICORTEN [Concomitant]
     Indication: RHEUMATOID ARTHRITIS
     Route: 048
  9. DICLOFENAC [Concomitant]
     Indication: RHEUMATOID ARTHRITIS
     Route: 048
  10. DICLOFENAC [Concomitant]
     Indication: ANTIINFLAMMATORY THERAPY
  11. CALCIUM [Concomitant]
     Indication: OSTEOPOROSIS
     Route: 048
  12. LORAZEPAM [Concomitant]
     Indication: SLEEP DISORDER THERAPY
     Dosage: 2 MG TABLET, TAKES 1/2-TABLET DAILY
     Route: 048
  13. AMITRIPTYLINE HCL [Concomitant]
     Indication: ANTIDEPRESSANT THERAPY
     Dosage: 25 MG TABLET, TAKES 1/2-TABLET DAILY
     Route: 048
  14. AMITRIPTYLINE HCL [Concomitant]
     Indication: SLEEP DISORDER THERAPY
  15. SIMVASTATIN [Concomitant]
     Indication: BLOOD CHOLESTEROL
     Route: 048
  16. PREDNISONE [Concomitant]
     Indication: RHEUMATOID ARTHRITIS
     Route: 048
     Dates: start: 19830101
  17. FERROUS SULFATE [Concomitant]
     Indication: ANAEMIA
     Route: 048
  18. FERROUS SULFATE [Concomitant]
     Indication: PAIN
  19. COMBIRON [Concomitant]
     Indication: ANAEMIA
     Route: 048
     Dates: start: 20100501

REACTIONS (13)
  - ARTHRALGIA [None]
  - BLOOD CHOLESTEROL ABNORMAL [None]
  - BODY HEIGHT DECREASED [None]
  - DRUG INEFFECTIVE [None]
  - INJECTION SITE NODULE [None]
  - MEDICAL DEVICE COMPLICATION [None]
  - PAIN [None]
  - PARAESTHESIA [None]
  - PATHOLOGICAL FRACTURE [None]
  - PURULENT DISCHARGE [None]
  - SENSATION OF HEAVINESS [None]
  - VITAMIN D DEFICIENCY [None]
  - WEIGHT INCREASED [None]
